FAERS Safety Report 4952376-4 (Version None)
Quarter: 2006Q1

REPORT INFORMATION
  Report Type: 
  Country: None (occurrence: None)
  Receive Date: 20060320
  Receipt Date: 20060309
  Transmission Date: 20060701
  Serious: Yes (Other)
  Sender: FDA-Public Use
  Company Number: 142531USA

PATIENT
  Sex: Female
  Weight: 2.6309 kg

DRUGS (2)
  1. COPAXONE [Suspect]
     Indication: MULTIPLE SCLEROSIS
     Dosage: 20 MILLIGRAM QD SUBCUTANEOUS
     Route: 058
     Dates: start: 20021101
  2. METFORMIN [Concomitant]

REACTIONS (4)
  - CAESAREAN SECTION [None]
  - CARTILAGE DEVELOPMENT DISORDER [None]
  - CONGENITAL TRACHEOMALACIA [None]
  - DRUG EXPOSURE DURING PREGNANCY [None]
